FAERS Safety Report 13574780 (Version 1)
Quarter: 2017Q2

REPORT INFORMATION
  Report Type: Spontaneous
  Country: ES (occurrence: ES)
  Receive Date: 20170523
  Receipt Date: 20170523
  Transmission Date: 20170830
  Serious: Yes (Other)
  Sender: FDA-Public Use
  Company Number: PHHY2017ES073622

PATIENT
  Age: 69 Year
  Sex: Male

DRUGS (2)
  1. CUBICIN [Suspect]
     Active Substance: DAPTOMYCIN
     Indication: SOFT TISSUE INFECTION
     Dosage: 700 MG, QD
     Route: 042
     Dates: start: 20170116, end: 20170118
  2. CEFEPIME [Suspect]
     Active Substance: CEFEPIME HYDROCHLORIDE
     Indication: SOFT TISSUE INFECTION
     Dosage: 1 G, Q8H
     Route: 042
     Dates: start: 20170116, end: 20170118

REACTIONS (1)
  - Eosinophilia [Recovered/Resolved]

NARRATIVE: CASE EVENT DATE: 20170118
